FAERS Safety Report 13640045 (Version 1)
Quarter: 2017Q2

REPORT INFORMATION
  Report Type: Spontaneous
  Country: US (occurrence: US)
  Receive Date: 20170609
  Receipt Date: 20170609
  Transmission Date: 20170830
  Serious: No
  Sender: FDA-Public Use
  Company Number: US-ROCHE-731310

PATIENT
  Sex: Female

DRUGS (6)
  1. PROPRANOLOL [Concomitant]
     Active Substance: PROPRANOLOL HYDROCHLORIDE
     Route: 065
  2. KLONOPIN [Suspect]
     Active Substance: CLONAZEPAM
     Indication: PRODUCT USED FOR UNKNOWN INDICATION
     Route: 065
  3. NICOTINE TRANSDERMAL SYSTEM [Concomitant]
     Active Substance: NICOTINE
     Route: 065
  4. ATENOLOL. [Concomitant]
     Active Substance: ATENOLOL
     Route: 065
  5. ALEVE [Concomitant]
     Active Substance: NAPROXEN SODIUM
     Route: 065
  6. PROZAC [Concomitant]
     Active Substance: FLUOXETINE HYDROCHLORIDE
     Route: 065

REACTIONS (28)
  - Muscle twitching [Unknown]
  - Pain [Unknown]
  - Influenza like illness [Unknown]
  - Cerebral disorder [Unknown]
  - Insomnia [Unknown]
  - Electric shock [Unknown]
  - Impatience [Unknown]
  - Chest pain [Unknown]
  - Swelling [Unknown]
  - Hallucination, visual [Unknown]
  - Hypervigilance [Unknown]
  - Myalgia [Unknown]
  - Muscle spasms [Unknown]
  - Joint range of motion decreased [Unknown]
  - Nausea [Unknown]
  - Movement disorder [Unknown]
  - Abdominal distension [Unknown]
  - Ill-defined disorder [Unknown]
  - Dizziness [Unknown]
  - Anxiety [Unknown]
  - Abdominal pain upper [Unknown]
  - Headache [Unknown]
  - Anger [Unknown]
  - Drug use disorder [Unknown]
  - Constipation [Unknown]
  - Nightmare [Unknown]
  - Pain in extremity [Unknown]
  - Diarrhoea [Unknown]
